FAERS Safety Report 9690018 (Version 1)
Quarter: 2013Q4

REPORT INFORMATION
  Report Type: Spontaneous
  Country: BR (occurrence: BR)
  Receive Date: 20131115
  Receipt Date: 20131115
  Transmission Date: 20140711
  Serious: Yes (Hospitalization)
  Sender: FDA-Public Use
  Company Number: BR-ROCHE-1303831

PATIENT
  Age: 52 Year
  Sex: 0

DRUGS (1)
  1. MABTHERA [Suspect]
     Indication: SJOGREN^S SYNDROME
     Route: 065

REACTIONS (1)
  - Coronary artery insufficiency [Unknown]
